FAERS Safety Report 6906590-9 (Version None)
Quarter: 2010Q3

REPORT INFORMATION
  Report Type: 
  Country: None (occurrence: None)
  Receive Date: 20100708
  Receipt Date: 20100426
  Transmission Date: 20110219
  Serious: Yes (Other)
  Sender: FDA-Public Use
  Company Number: 2010054306

PATIENT
  Age: 64 Year
  Sex: Female
  Weight: 54.4 kg

DRUGS (8)
  1. CHANTIX [Suspect]
     Indication: SMOKING CESSATION THERAPY
     Dosage: 0.5 MG, 1X/DAY, ORAL, 0.5 MG, 2X/DAY, ORAL, 1  MG, 2X/DAY, ORAL
     Route: 048
     Dates: start: 20100201, end: 20100201
  2. CHANTIX [Suspect]
     Indication: SMOKING CESSATION THERAPY
     Dosage: 0.5 MG, 1X/DAY, ORAL, 0.5 MG, 2X/DAY, ORAL, 1  MG, 2X/DAY, ORAL
     Route: 048
     Dates: start: 20100202, end: 20100201
  3. CHANTIX [Suspect]
     Indication: SMOKING CESSATION THERAPY
     Dosage: 0.5 MG, 1X/DAY, ORAL, 0.5 MG, 2X/DAY, ORAL, 1  MG, 2X/DAY, ORAL
     Route: 048
     Dates: start: 20100201, end: 20100401
  4. MARIJUANA (CANNABIS) [Concomitant]
  5. MONTELUKAST SODIUM [Concomitant]
  6. ALBUTEROL [Concomitant]
  7. SPIRIVA [Concomitant]
  8. ADVAIR DISKUS 100/50 [Concomitant]

REACTIONS (6)
  - AGITATION [None]
  - ANGER [None]
  - CRYING [None]
  - HEADACHE [None]
  - NAUSEA [None]
  - VOMITING [None]
